FAERS Safety Report 4457528-8 (Version None)
Quarter: 2004Q3

REPORT INFORMATION
  Report Type: 
  Country: None (occurrence: None)
  Receive Date: 20040921
  Receipt Date: 20040902
  Transmission Date: 20050211
  Serious: Yes (Hospitalization, Other)
  Sender: FDA-Public Use
  Company Number: A0350035A

PATIENT
  Age: 14 Year
  Sex: Female
  Weight: 57.9243 kg

DRUGS (3)
  1. PAXIL [Suspect]
     Indication: DEPRESSION
     Dosage: SEE DOSAGE TEXT/  ORAL
     Route: 048
     Dates: start: 20000101, end: 20010101
  2. SEMISODIUM VALPROATE [Concomitant]
  3. RISPERIDONE [Concomitant]

REACTIONS (18)
  - AGGRESSION [None]
  - BILIARY COLIC [None]
  - CHOLELITHIASIS [None]
  - COGNITIVE DISORDER [None]
  - CYST [None]
  - DEPRESSION [None]
  - ENCEPHALITIS [None]
  - FALL [None]
  - FATIGUE [None]
  - GASTRITIS [None]
  - INTENTIONAL SELF-INJURY [None]
  - MYOPIA [None]
  - PALPITATIONS [None]
  - PLEURITIC PAIN [None]
  - POLLAKIURIA [None]
  - SUICIDE ATTEMPT [None]
  - URINARY RETENTION [None]
  - WEIGHT DECREASED [None]
